FAERS Safety Report 15906215 (Version 1)
Quarter: 2019Q1

REPORT INFORMATION
  Report Type: Spontaneous
  Country: SE (occurrence: SE)
  Receive Date: 20190204
  Receipt Date: 20190204
  Transmission Date: 20190417
  Serious: Yes (Hospitalization)
  Sender: FDA-Public Use
  Company Number: SE-PFIZER INC-2019048072

PATIENT

DRUGS (1)
  1. ADRENALINE [Suspect]
     Active Substance: EPINEPHRINE
     Indication: URTICARIA
     Dosage: 3 MG, UNK
     Route: 030
     Dates: start: 2018, end: 2018

REACTIONS (4)
  - Tachycardia [Recovered/Resolved with Sequelae]
  - Accidental overdose [Unknown]
  - Chest discomfort [Recovered/Resolved with Sequelae]
  - Anxiety [Recovered/Resolved with Sequelae]

NARRATIVE: CASE EVENT DATE: 2018
